FAERS Safety Report 8333191-0 (Version None)
Quarter: 2012Q2

REPORT INFORMATION
  Report Type: 
  Country: None (occurrence: None)
  Receive Date: 20120503
  Receipt Date: 20120425
  Transmission Date: 20120825
  Serious: Yes (Hospitalization)
  Sender: FDA-Public Use
  Company Number: US-VERTEX PHARMACEUTICALS INC.-AE-2012-005355

PATIENT
  Sex: Female
  Weight: 78.088 kg

DRUGS (12)
  1. PEGASYS [Concomitant]
     Indication: HEPATITIS C
     Route: 058
     Dates: start: 20120312, end: 20120420
  2. HYDROCHLOROTHIAZIDE [Concomitant]
  3. TRIAMCINOLONE [Concomitant]
  4. NYSTATIN [Concomitant]
  5. RIBAVIRIN [Concomitant]
     Route: 048
     Dates: start: 20120412, end: 20120420
  6. ASPIRIN [Concomitant]
  7. ECONAZOLE NITRATE [Concomitant]
  8. MULTI-VITAMIN [Concomitant]
  9. HYDROCORTISONE [Concomitant]
  10. RIBAVIRIN [Concomitant]
     Indication: HEPATITIS C
     Route: 048
     Dates: start: 20120312, end: 20120411
  11. OMEPRAZOLE [Concomitant]
  12. INCIVEK [Suspect]
     Indication: HEPATITIS C
     Route: 048
     Dates: start: 20120312, end: 20120420

REACTIONS (12)
  - ANAEMIA [None]
  - DEPRESSION [None]
  - FATIGUE [None]
  - BLOOD PRESSURE DECREASED [None]
  - PYREXIA [None]
  - DIZZINESS [None]
  - HYPERACUSIS [None]
  - RASH [None]
  - PAIN [None]
  - ANXIETY [None]
  - ABDOMINAL DISCOMFORT [None]
  - PRURITUS [None]
